FAERS Safety Report 13155515 (Version 1)
Quarter: 2017Q1

REPORT INFORMATION
  Report Type: Spontaneous
  Country: US (occurrence: US)
  Receive Date: 20170126
  Receipt Date: 20170126
  Transmission Date: 20170428
  Serious: No
  Sender: FDA-Public Use
  Company Number: US-ALLERGAN-1702422US

PATIENT
  Age: 77 Year
  Sex: Female

DRUGS (1)
  1. OXYBUTYNIN UNK [Suspect]
     Active Substance: OXYBUTYNIN
     Indication: BLADDER SPASM
     Dosage: 40 MG, UNK
     Route: 048
     Dates: start: 201607, end: 201609

REACTIONS (5)
  - Drug ineffective [Unknown]
  - Dry mouth [Unknown]
  - Product substitution issue [Unknown]
  - Product physical issue [Unknown]
  - Incorrect dose administered [Unknown]
